FAERS Safety Report 5682295-X (Version None)
Quarter: 2008Q1

REPORT INFORMATION
  Report Type: 
  Country: None (occurrence: None)
  Receive Date: 20080327
  Receipt Date: 20080319
  Transmission Date: 20080703
  Serious: Yes (Hospitalization)
  Sender: FDA-Public Use
  Company Number: PHRM2008FR01105

PATIENT
  Age: 57 Year
  Sex: Male

DRUGS (2)
  1. EXFORGE [Suspect]
     Route: 048
  2. TAHOR [Concomitant]
     Route: 048

REACTIONS (3)
  - DECOMPRESSION SICKNESS [None]
  - ERECTILE DYSFUNCTION [None]
  - TRANSIENT ISCHAEMIC ATTACK [None]
